FAERS Safety Report 6613818-1 (Version None)
Quarter: 2010Q1

REPORT INFORMATION
  Report Type: 
  Country: None (occurrence: None)
  Receive Date: 20100225
  Receipt Date: 20090319
  Transmission Date: 20100710
  Serious: Yes (Death, Hospitalization)
  Sender: FDA-Public Use
  Company Number: DSA_33410_2009

PATIENT
  Age: 88 Year
  Sex: Female

DRUGS (8)
  1. ENALAPRIL MALEATE [Suspect]
     Indication: HYPERTENSION
     Dosage: (10 MG BID ORAL)
     Route: 048
  2. METFORMIN HCL [Suspect]
     Indication: DIABETES MELLITUS
     Dosage: (1000 MG BID ORAL)
     Route: 048
     Dates: end: 20090223
  3. NORVASC [Concomitant]
  4. IMDUR [Concomitant]
  5. CIPRAMIL /00582601/ [Concomitant]
  6. NEURONTIN [Concomitant]
  7. ALBYL-E [Concomitant]
  8. LIPITOR [Concomitant]

REACTIONS (4)
  - DRUG INTERACTION [None]
  - HYPERKALAEMIA [None]
  - LACTIC ACIDOSIS [None]
  - RENAL FAILURE ACUTE [None]
